FAERS Safety Report 9773156 (Version 1)
Quarter: 2013Q4

REPORT INFORMATION
  Report Type: Spontaneous
  Country: US (occurrence: US)
  Receive Date: 20131219
  Receipt Date: 20131219
  Transmission Date: 20140711
  Serious: No
  Sender: FDA-Public Use
  Company Number: US-BAYER-2013-154678

PATIENT
  Age: 35 Year
  Sex: Female
  Weight: 79.37 kg

DRUGS (2)
  1. YAZ [Suspect]
     Indication: ORAL CONTRACEPTION
     Dosage: UNK
     Route: 048
     Dates: start: 200710
  2. YASMIN [Suspect]

REACTIONS (5)
  - Abnormal withdrawal bleeding [Not Recovered/Not Resolved]
  - Headache [Not Recovered/Not Resolved]
  - Abnormal withdrawal bleeding [Not Recovered/Not Resolved]
  - Metrorrhagia [Not Recovered/Not Resolved]
  - Headache [Not Recovered/Not Resolved]
